FAERS Safety Report 8789682 (Version 1)
Quarter: 2012Q4

REPORT INFORMATION
  Report Type: Spontaneous
  Country: US (occurrence: None)
  Receive Date: 20120911
  Receipt Date: 20120911
  Transmission Date: 20130627
  Serious: Yes (Hospitalization)
  Sender: FDA-Public Use
  Company Number: None

PATIENT
  Age: 71 Year
  Sex: Female
  Weight: 58 kg

DRUGS (13)
  1. METFORMIN [Suspect]
     Indication: DIABETES MELLITUS
     Dosage: prior to admission
     Route: 048
  2. ACETAMINOPHEN [Concomitant]
  3. CALCITONIN SPRAY [Concomitant]
  4. CALCIUM + VITAMIN D [Concomitant]
  5. VITAMIN D [Concomitant]
  6. DONEPEZIL [Concomitant]
  7. LISINOPRIL [Concomitant]
  8. MEMANTADINE [Concomitant]
  9. NAPROXEN [Concomitant]
  10. OMEPRAZOLE [Concomitant]
  11. SENNA [Concomitant]
  12. FLUTICASONE [Concomitant]
  13. METOPROLOL XL [Concomitant]

REACTIONS (6)
  - Mental status changes [None]
  - Dehydration [None]
  - Renal failure acute [None]
  - Hypernatraemia [None]
  - Dementia [None]
  - Blood lactic acid increased [None]
